FAERS Safety Report 4734228-8 (Version None)
Quarter: 2005Q3

REPORT INFORMATION
  Report Type: 
  Country: None (occurrence: None)
  Receive Date: 20050803
  Receipt Date: 20050803
  Transmission Date: 20060218
  Serious: Yes (Hospitalization)
  Sender: FDA-Public Use
  Company Number: None

PATIENT
  Age: 81 Year
  Sex: Male

DRUGS (1)
  1. TYLENOL PM OTC [Suspect]
     Dosage: X 3 NIGHTS

REACTIONS (4)
  - AGITATION [None]
  - ANXIETY [None]
  - FLUSHING [None]
  - VISION BLURRED [None]
